FAERS Safety Report 11419037 (Version 1)
Quarter: 2015Q3

REPORT INFORMATION
  Report Type: Spontaneous
  Country: JP (occurrence: JP)
  Receive Date: 20150826
  Receipt Date: 20150826
  Transmission Date: 20151125
  Serious: Yes (Hospitalization, Other)
  Sender: FDA-Public Use
  Company Number: JP-ELI_LILLY_AND_COMPANY-JP201508001029

PATIENT
  Age: 20 Year
  Sex: Female
  Weight: 49.6 kg

DRUGS (3)
  1. ROZEREM [Concomitant]
     Active Substance: RAMELTEON
     Indication: INSOMNIA
     Dosage: 8 MG, PRN
     Route: 048
     Dates: start: 20141126, end: 20150729
  2. STRATTERA [Suspect]
     Active Substance: ATOMOXETINE HYDROCHLORIDE
     Indication: ATTENTION DEFICIT/HYPERACTIVITY DISORDER
     Dosage: 80 MG, EACH EVENING
     Route: 048
     Dates: start: 20110606, end: 20150803
  3. CONCERTA [Concomitant]
     Active Substance: METHYLPHENIDATE HYDROCHLORIDE
     Dosage: 18 MG, PRN
     Route: 048

REACTIONS (4)
  - Pelvic fracture [Unknown]
  - Mania [Not Recovered/Not Resolved]
  - Psychotic disorder [Unknown]
  - Ankle fracture [Unknown]

NARRATIVE: CASE EVENT DATE: 20140315
